FAERS Safety Report 20228843 (Version 2)
Quarter: 2021Q4

REPORT INFORMATION
  Report Type: Spontaneous
  Country: US (occurrence: US)
  Receive Date: 20211225
  Receipt Date: 20211229
  Transmission Date: 20220303
  Serious: Yes (Hospitalization)
  Sender: FDA-Public Use
  Company Number: US-SANOFI-00903444

PATIENT
  Age: 75 Year
  Sex: Female

DRUGS (2)
  1. DUPIXENT [Suspect]
     Active Substance: DUPILUMAB
     Indication: Eczema
     Dosage: 300 MG, QOW
  2. TRAMADOL [Concomitant]
     Active Substance: TRAMADOL
     Dosage: STRENGTH: 0.5

REACTIONS (9)
  - Limb operation [Unknown]
  - Illness [Unknown]
  - Vomiting [Unknown]
  - Spinal stenosis [Unknown]
  - Nerve compression [Unknown]
  - Rib fracture [Unknown]
  - Peripheral arterial occlusive disease [Unknown]
  - Product dose omission issue [Unknown]
  - Device issue [Unknown]

NARRATIVE: CASE EVENT DATE: 20211201
